FAERS Safety Report 9939532 (Version 1)
Quarter: 2014Q1

REPORT INFORMATION
  Report Type: Report from Study
  Country: US (occurrence: US)
  Receive Date: 20140303
  Receipt Date: 20140303
  Transmission Date: 20141002
  Serious: No
  Sender: FDA-Public Use
  Company Number: US-ABBVIE-13P-163-1035617-00

PATIENT
  Age: 59 Year
  Sex: Female

DRUGS (15)
  1. HUMIRA [Suspect]
     Indication: RHEUMATOID ARTHRITIS
     Dates: start: 201211
  2. METHOTREXATE [Concomitant]
     Indication: RHEUMATOID ARTHRITIS
     Dosage: 1 TAB DAILY, EXCEPT ON SUNDAYS, TAKES 2 TABS
  3. PREDNISONE [Concomitant]
     Indication: RHEUMATOID ARTHRITIS
     Dosage: 2.5 MG DAILY
  4. FUROSEMIDE [Concomitant]
     Indication: FLUID RETENTION
     Dosage: 20 MG DAILY
  5. LORTAB [Concomitant]
     Indication: PAIN
     Dosage: AS REQUIRED
  6. SPIRIVA [Concomitant]
     Indication: ASTHMA
     Dosage: 4 PUFFS DAILY AS REQUIRED
     Route: 055
  7. WARFARIN [Concomitant]
     Indication: ANTICOAGULANT THERAPY
     Dosage: 5 MG DAILY
  8. FOLIC ACID [Concomitant]
     Indication: PRODUCT USED FOR UNKNOWN INDICATION
     Dosage: 1 MG DAILY
  9. AMITIZA [Concomitant]
     Indication: GASTROINTESTINAL DISORDER
  10. HUMULIN [Concomitant]
     Indication: DIABETES MELLITUS
     Dosage: SLIDING SCALE INSULIN: BS 141-200: 2 UNITS AT LUNCH
  11. HUMULIN [Concomitant]
     Dosage: SLIDING SCALE INSULIN: BS 201-250: 4 UNITS AT LUNCH
  12. HUMULIN [Concomitant]
     Dosage: SLIDING SCALE INSULIN: BS 251-300: 6 UNITS AT LUNCH
  13. HUMULIN [Concomitant]
     Dosage: SLIDING SCALE INSULIN: BS 301-350: 8 UNITS AT LUNCH
  14. HUMULIN [Concomitant]
     Dosage: SLIDING SCALE INSULIN: BS } 400: 10 UNITS AT LUNCH
  15. LANTUS [Concomitant]
     Indication: DIABETES MELLITUS
     Dosage: AT BEDTIME

REACTIONS (1)
  - Injection site pain [Unknown]
